FAERS Safety Report 5807008-X (Version None)
Quarter: 2008Q3

REPORT INFORMATION
  Report Type: 
  Country: None (occurrence: None)
  Receive Date: 20080711
  Receipt Date: 20080707
  Transmission Date: 20090109
  Serious: Yes (Hospitalization, Other)
  Sender: FDA-Public Use
  Company Number: US-JNJFOC-20080500157

PATIENT
  Sex: Female
  Weight: 72.58 kg

DRUGS (30)
  1. REMICADE [Suspect]
     Indication: CROHN'S DISEASE
     Route: 042
  2. TYLENOL [Concomitant]
     Indication: ARTHRITIS
  3. ACCOLATE [Concomitant]
     Indication: ASTHMA
     Dosage: 5YEARS
  4. SODIUM CHLORIDE [Concomitant]
     Route: 042
  5. ASTELIN [Concomitant]
     Route: 045
  6. ATIVAN [Concomitant]
     Indication: ANXIETY
     Route: 048
  7. COMBIVENT [Concomitant]
     Indication: DYSPNOEA
     Route: 055
  8. DIOVAN [Concomitant]
     Indication: PAIN
     Route: 048
  9. ENTERCORT [Concomitant]
  10. HEPARIN [Concomitant]
  11. POTASSIUM CHLORIDE [Concomitant]
     Route: 048
  12. LUNESTA [Concomitant]
     Indication: INSOMNIA
     Route: 048
  13. NASONEX [Concomitant]
     Route: 045
  14. NEURONTIN [Concomitant]
     Route: 048
  15. NEURONTIN [Concomitant]
     Route: 048
  16. PROTONIX [Concomitant]
     Route: 048
  17. PHENERGAN HCL [Concomitant]
     Route: 048
  18. RELPAX [Concomitant]
     Indication: HEADACHE
     Route: 048
  19. REQUIP [Concomitant]
     Route: 048
  20. TOPAMAX [Concomitant]
     Route: 048
  21. TRAZEDONE [Concomitant]
     Route: 048
  22. ULTRAM [Concomitant]
     Indication: PAIN
     Route: 048
  23. VITAMIN B-12 [Concomitant]
     Route: 030
  24. ZOFRAN [Concomitant]
     Indication: VOMITING
     Route: 048
  25. ZOFRAN [Concomitant]
     Indication: NAUSEA
     Route: 048
  26. SONATA [Concomitant]
     Route: 048
  27. ACCOLATE [Concomitant]
     Route: 048
  28. AXID AR [Concomitant]
     Route: 048
  29. CARAFATE [Concomitant]
     Route: 048
  30. FLEXERIL [Concomitant]

REACTIONS (13)
  - ANAEMIA [None]
  - DECUBITUS ULCER [None]
  - DYSKINESIA [None]
  - FALL [None]
  - HYPOKALAEMIA [None]
  - INSOMNIA [None]
  - MIGRAINE [None]
  - NAUSEA [None]
  - PAIN [None]
  - PAIN IN EXTREMITY [None]
  - PARALYSIS [None]
  - RESTLESS LEGS SYNDROME [None]
  - RIB FRACTURE [None]
